FAERS Safety Report 4301641-2 (Version None)
Quarter: 2004Q1

REPORT INFORMATION
  Report Type: 
  Country: None (occurrence: None)
  Receive Date: 20040223
  Receipt Date: 20040212
  Transmission Date: 20041129
  Serious: Yes (Life-Threatening)
  Sender: FDA-Public Use
  Company Number: IT-BRISTOL-MYERS SQUIBB COMPANY-12504775

PATIENT
  Age: 70 Year
  Sex: Male

DRUGS (1)
  1. TAXOL [Suspect]
     Indication: NON-HODGKIN'S LYMPHOMA
     Route: 042
     Dates: start: 20031103, end: 20031103

REACTIONS (3)
  - CARDIAC ARREST [None]
  - RASH [None]
  - THROAT TIGHTNESS [None]
